FAERS Safety Report 9127051 (Version 7)
Quarter: 2015Q2

REPORT INFORMATION
  Report Type: Report from Study
  Country: CA (occurrence: CA)
  Receive Date: 20130228
  Receipt Date: 20150619
  Transmission Date: 20150821
  Serious: Yes (Other)
  Sender: FDA-Public Use
  Company Number: PHHY2013CA019510

PATIENT
  Age: 64 Year
  Sex: Female

DRUGS (1)
  1. SANDOSTATIN LAR DEPOT [Suspect]
     Active Substance: OCTREOTIDE ACETATE
     Indication: NEUROENDOCRINE TUMOUR
     Dosage: 20 MG, EVERY 4 WEEKS
     Route: 030
     Dates: start: 20090817

REACTIONS (11)
  - Blood pressure increased [Unknown]
  - Soft tissue injury [Unknown]
  - Diabetes mellitus [Recovering/Resolving]
  - Flank pain [Recovering/Resolving]
  - Insomnia [Unknown]
  - Ingrowing nail [Recovered/Resolved]
  - Headache [Unknown]
  - Dizziness [Recovered/Resolved]
  - Heart rate decreased [Unknown]
  - Road traffic accident [Unknown]
  - Vertigo [Recovered/Resolved]

NARRATIVE: CASE EVENT DATE: 20130203
